FAERS Safety Report 6165407-3 (Version None)
Quarter: 2009Q2

REPORT INFORMATION
  Report Type: 
  Country: None (occurrence: None)
  Receive Date: 20090423
  Receipt Date: 20090421
  Transmission Date: 20091009
  Serious: Yes (Hospitalization)
  Sender: FDA-Public Use
  Company Number: US-BRISTOL-MYERS SQUIBB COMPANY-14595904

PATIENT
  Age: 50 Year
  Sex: Male
  Weight: 79 kg

DRUGS (3)
  1. ERBITUX [Suspect]
     Indication: PHARYNGEAL CANCER STAGE UNSPECIFIED
     Dosage: 400MG/M2:1/30/09WKLY,250MG/M2, 1ST COU:30JAN09 COURSE ASSOCIATED:11MAR09 TOT COUR:7
     Route: 042
     Dates: start: 20090311, end: 20090311
  2. CISPLATIN [Suspect]
     Indication: PHARYNGEAL CANCER STAGE UNSPECIFIED
     Dosage: 100MG/M2 ON DAY 1 + 22 OF RADIATIN. NO OF COURSE:7 1ST COU:30JAN09 COURSE ASSOCIATED:11MAR09
     Route: 042
     Dates: start: 20090225, end: 20090225
  3. RADIATION THERAPY [Suspect]
     Indication: PHARYNGEAL CANCER STAGE UNSPECIFIED
     Dosage: 1 DF=70GY EXTERNAL BEAM,IMRT NO FRACTION 35 NO ELASPED DAYS:41 7 WKS CONCURRENT
     Dates: start: 20090317, end: 20090317

REACTIONS (4)
  - GINGIVITIS [None]
  - ORAL PAIN [None]
  - OROPHARYNGEAL PAIN [None]
  - RADIATION SKIN INJURY [None]
